FAERS Safety Report 7000501-6 (Version None)
Quarter: 2010Q3

REPORT INFORMATION
  Report Type: 
  Country: None (occurrence: None)
  Receive Date: 20100920
  Receipt Date: 20080110
  Transmission Date: 20110219
  Serious: Yes (Other)
  Sender: FDA-Public Use
  Company Number: US-ASTRAZENECA-2006UW12163

PATIENT
  Sex: Male
  Weight: 99.8 kg

DRUGS (8)
  1. SEROQUEL [Suspect]
     Indication: ANXIETY
     Route: 048
     Dates: start: 20030101
  2. SEROQUEL [Suspect]
     Indication: DEPRESSION
     Route: 048
     Dates: start: 20030101
  3. SEROQUEL [Suspect]
     Indication: SCHIZOPHRENIA
     Route: 048
     Dates: start: 20030101
  4. SEROQUEL [Suspect]
     Dosage: 75 - 300, 200 MG DISPENSED
     Route: 048
     Dates: start: 20041119
  5. SEROQUEL [Suspect]
     Dosage: 75 - 300, 200 MG DISPENSED
     Route: 048
     Dates: start: 20041119
  6. SEROQUEL [Suspect]
     Dosage: 75 - 300, 200 MG DISPENSED
     Route: 048
     Dates: start: 20041119
  7. WELLBUTRIN XL [Concomitant]
     Dates: start: 20041119
  8. DIPHENHYDRAMINE HCL [Concomitant]
     Dosage: 25 MG B.I.D , 50 MG DISPENSED
     Dates: start: 19981008

REACTIONS (5)
  - DIABETES MELLITUS [None]
  - DIABETIC COMA [None]
  - HYPERGLYCAEMIA [None]
  - KETOACIDOSIS [None]
  - PANCREATITIS [None]
